FAERS Safety Report 9202533 (Version 2)
Quarter: 2013Q2

REPORT INFORMATION
  Report Type: Spontaneous
  Country: AT (occurrence: AT)
  Receive Date: 20130401
  Receipt Date: 20130418
  Transmission Date: 20140414
  Serious: Yes (Hospitalization)
  Sender: FDA-Public Use
  Company Number: AT-CELGENEUS-009-50794-13033112

PATIENT
  Age: 69 Year
  Sex: Male
  Weight: 90 kg

DRUGS (7)
  1. VIDAZA [Suspect]
     Indication: ACUTE MYELOID LEUKAEMIA
     Dosage: 150 MILLIGRAM
     Route: 058
     Dates: start: 20130107, end: 20130113
  2. VIDAZA [Suspect]
     Dosage: 150 MILLIGRAM
     Route: 058
     Dates: start: 20130204, end: 20130210
  3. PANTOPRAZOLE [Concomitant]
     Indication: PRODUCT USED FOR UNKNOWN INDICATION
     Route: 065
  4. TAMSULOSIN [Concomitant]
     Indication: BENIGN PROSTATIC HYPERPLASIA
     Route: 065
  5. METFORMIN [Concomitant]
     Indication: DIABETES MELLITUS
     Route: 065
  6. NOVOMIX [Concomitant]
     Indication: DIABETES MELLITUS
     Route: 065
  7. VALACICLOVIR [Concomitant]
     Indication: ANTIVIRAL PROPHYLAXIS
     Route: 065

REACTIONS (1)
  - Abdominal wall abscess [Recovered/Resolved]
